FAERS Safety Report 9495037 (Version 1)
Quarter: 2013Q3

REPORT INFORMATION
  Report Type: Spontaneous
  Country: US (occurrence: None)
  Receive Date: 20130830
  Receipt Date: 20130830
  Transmission Date: 20140515
  Serious: No
  Sender: FDA-Public Use
  Company Number: None

PATIENT
  Sex: Female

DRUGS (2)
  1. TOPIRAMATE [Suspect]
     Indication: CONVULSION
     Dosage: 2TABS 2X^S DAY
     Route: 048
     Dates: start: 20100203
  2. TOPIRAMATE [Suspect]
     Indication: EPILEPSY
     Dosage: 2TABS 2X^S DAY
     Route: 048
     Dates: start: 20100203

REACTIONS (3)
  - Nausea [None]
  - Vomiting [None]
  - Product substitution issue [None]
